FAERS Safety Report 4544294-0 (Version None)
Quarter: 2004Q4

REPORT INFORMATION
  Report Type: 
  Country: None (occurrence: None)
  Receive Date: 20041230
  Receipt Date: 20041216
  Transmission Date: 20050328
  Serious: Yes (Hospitalization)
  Sender: FDA-Public Use
  Company Number: DSA_25535_2004

PATIENT
  Age: 49 Year
  Sex: Female

DRUGS (2)
  1. RENIVACE [Suspect]
     Indication: HYPERTENSION
     Dosage: 5MG QAM PO
     Route: 048
     Dates: start: 20041027, end: 20041124
  2. MAGNESIUM OXIDE [Concomitant]

REACTIONS (2)
  - PLATELET COUNT DECREASED [None]
  - RETINAL HAEMORRHAGE [None]
